APPROVED DRUG PRODUCT: CYCLOPHOSPHAMIDE
Active Ingredient: CYCLOPHOSPHAMIDE
Strength: 50MG
Dosage Form/Route: TABLET;ORAL
Application: A040032 | Product #002
Applicant: ROXANE LABORATORIES INC
Approved: Aug 17, 1999 | RLD: No | RS: No | Type: DISCN